FAERS Safety Report 24654528 (Version 3)
Quarter: 2025Q3

REPORT INFORMATION
  Report Type: Spontaneous
  Country: US (occurrence: US)
  Receive Date: 20241122
  Receipt Date: 20250801
  Transmission Date: 20251020
  Serious: No
  Sender: TAIHO ONCOLOGY INC
  Company Number: US-TAIHOP-2024-011067

PATIENT
  Sex: Female

DRUGS (2)
  1. LONSURF [Suspect]
     Active Substance: TIPIRACIL HYDROCHLORIDE\TRIFLURIDINE
     Indication: Rectal cancer
     Dosage: CYCLE 1 START DATE WAS UNKNOWN, CURRENT CYCLE UNKNOWN
     Route: 048
  2. LONSURF [Suspect]
     Active Substance: TIPIRACIL HYDROCHLORIDE\TRIFLURIDINE
     Dosage: TOOK 3 TABLETS IN THE MORNING AND 2 TABLETS IN THE EVENING ON DAYS 1 THROUGH 5 AND 8 THROUGH 12 OF E
     Route: 048

REACTIONS (6)
  - Cytopenia [Unknown]
  - Fatigue [Unknown]
  - Chest pain [Unknown]
  - Asthenia [Unknown]
  - Somnolence [Unknown]
  - Stomatitis [Unknown]
